FAERS Safety Report 5909620-6 (Version None)
Quarter: 2008Q4

REPORT INFORMATION
  Report Type: 
  Country: None (occurrence: None)
  Receive Date: 20081002
  Receipt Date: 20080923
  Transmission Date: 20090506
  Serious: Yes (Hospitalization)
  Sender: FDA-Public Use
  Company Number: 2008BI001459

PATIENT
  Age: 52 Year
  Sex: Female
  Weight: 110.6777 kg

DRUGS (8)
  1. AVONEX [Suspect]
     Indication: MULTIPLE SCLEROSIS
     Dosage: 30 UG;QW;IM
     Route: 030
     Dates: start: 20041027
  2. LEVOTHYROXINE (CON.) [Concomitant]
  3. LIPITOR (CON.) [Concomitant]
  4. NORETHINDRONE ACETATE (CON.) [Concomitant]
  5. IBUPROFEN (CON.) [Concomitant]
  6. ACETAMINOPHEN (CON.) [Concomitant]
  7. DIPHENHYDRAMINE (CON.) [Concomitant]
  8. MULTIVITAMINS (CON.) [Concomitant]

REACTIONS (17)
  - ASTHENIA [None]
  - BACTERIAL INFECTION [None]
  - ENDOMETRIAL CANCER [None]
  - ENTERITIS INFECTIOUS [None]
  - ESCHERICHIA INFECTION [None]
  - FEELING ABNORMAL [None]
  - GASTROOESOPHAGEAL REFLUX DISEASE [None]
  - HAEMATOCRIT DECREASED [None]
  - KLEBSIELLA INFECTION [None]
  - MUSCLE ATROPHY [None]
  - PNEUMONIA [None]
  - PNEUMOTHORAX [None]
  - PULMONARY EMBOLISM [None]
  - RASH GENERALISED [None]
  - THROMBOPHLEBITIS SUPERFICIAL [None]
  - URINARY TRACT INFECTION [None]
  - URINE OUTPUT DECREASED [None]
